FAERS Safety Report 8455447-3 (Version None)
Quarter: 2012Q2

REPORT INFORMATION
  Report Type: 
  Country: None (occurrence: None)
  Receive Date: 20120613
  Receipt Date: 20120529
  Transmission Date: 20120825
  Serious: Yes (Other)
  Sender: FDA-Public Use
  Company Number: B0806866A

PATIENT

DRUGS (3)
  1. PALIFERMIN (FORMULATION UNKNOWN) (PALIFERMIN) [Suspect]
     Indication: MULTIPLE MYELOMA
     Dosage: 60 MCG/KG / PER DAY / INTRAVENOUS
     Route: 042
  2. FILGRASTIM (FORMULATION UNKNOWN) (FILGRASTIM) [Suspect]
     Dosage: 5 MCG/KG / PER DAY / SUBCUTANEOUS
     Route: 058
  3. MELPHALAN HYDROCHLORIDE [Suspect]
     Indication: MULTIPLE MYELOMA
     Dosage: 160 MG/M2

REACTIONS (1)
  - ATRIAL FIBRILLATION [None]
